FAERS Safety Report 5577515-6 (Version None)
Quarter: 2007Q4

REPORT INFORMATION
  Report Type: 
  Country: None (occurrence: None)
  Receive Date: 20071228
  Receipt Date: 20071219
  Transmission Date: 20080405
  Serious: Yes (Other)
  Sender: FDA-Public Use
  Company Number: GB-PFIZER INC-2007106988

PATIENT
  Age: 73 Year
  Sex: Female
  Weight: 89 kg

DRUGS (12)
  1. DETRUSITOL [Suspect]
     Indication: INCONTINENCE
     Route: 048
  2. ACETYLSALICYLIC ACID SRT [Concomitant]
     Dosage: DAILY DOSE:75MG
     Route: 048
  3. CLOTRIMAZOLE [Concomitant]
     Route: 061
  4. E45 ITCH RELIEF [Concomitant]
     Route: 061
  5. ENALAPRIL [Concomitant]
     Dosage: DAILY DOSE:20MG
     Route: 048
  6. GLYCERYL TRINITRATE [Concomitant]
  7. INSULATARD [Concomitant]
  8. IPRATROPIUM BROMIDE [Concomitant]
     Route: 055
  9. METFORMIN HCL [Concomitant]
     Route: 048
  10. NOVORAPID [Concomitant]
  11. ORLISTAT [Concomitant]
     Route: 048
  12. ACETAMINOPHEN [Concomitant]
     Route: 048

REACTIONS (2)
  - DIABETES MELLITUS INADEQUATE CONTROL [None]
  - HYPOGLYCAEMIA [None]
